FAERS Safety Report 20968414 (Version 1)
Quarter: 2022Q2

REPORT INFORMATION
  Report Type: Spontaneous
  Country: CN (occurrence: CN)
  Receive Date: 20220616
  Receipt Date: 20220616
  Transmission Date: 20220721
  Serious: Yes (Hospitalization, Other)
  Sender: FDA-Public Use
  Company Number: CN-ZAILAB-ZAI202200601

PATIENT
  Age: 76 Year
  Sex: Female
  Weight: 47 kg

DRUGS (3)
  1. QINLOCK [Suspect]
     Active Substance: RIPRETINIB
     Indication: Gastrointestinal stromal tumour
     Dosage: 150 MG, DAILY
     Route: 048
     Dates: start: 20210615
  2. QINLOCK [Suspect]
     Active Substance: RIPRETINIB
     Dosage: 50 MG, DAILY
     Route: 048
     Dates: end: 2022
  3. QINLOCK [Suspect]
     Active Substance: RIPRETINIB
     Dosage: 25 MG, DAILY
     Route: 048
     Dates: start: 2022

REACTIONS (5)
  - Blood albumin decreased [Recovering/Resolving]
  - Renal impairment [Recovering/Resolving]
  - Abdominal discomfort [Recovering/Resolving]
  - Asthenia [Recovering/Resolving]
  - Alopecia [Recovering/Resolving]

NARRATIVE: CASE EVENT DATE: 20210701
